FAERS Safety Report 25936130 (Version 3)
Quarter: 2025Q4

REPORT INFORMATION
  Report Type: Spontaneous
  Country: US (occurrence: US)
  Receive Date: 20251017
  Receipt Date: 20251126
  Transmission Date: 20260118
  Serious: No
  Sender: PFIZER
  Company Number: US-PFIZER INC-202500175924

PATIENT
  Age: 64 Year
  Sex: Female

DRUGS (1)
  1. TUKYSA [Suspect]
     Active Substance: TUCATINIB
     Indication: Breast cancer female
     Dosage: TAKE ONE 150MG TABLET IN THE AM AND TAKE TWO 150MG TABLETS IN THE PM

REACTIONS (2)
  - Herpes zoster [Unknown]
  - Off label use [Unknown]
